FAERS Safety Report 22531373 (Version 1)
Quarter: 2023Q2

REPORT INFORMATION
  Report Type: Spontaneous
  Country: US (occurrence: None)
  Receive Date: 20230606
  Receipt Date: 20230606
  Transmission Date: 20230721
  Serious: No
  Sender: FDA-Public Use
  Company Number: None

PATIENT
  Age: 3 Year
  Sex: Male

DRUGS (4)
  1. VIGABATRIN [Suspect]
     Active Substance: VIGABATRIN
     Indication: Partial seizures
  2. CETIRIZINE HCL ALLERGY CH [Concomitant]
  3. DIAZEPAM [Concomitant]
     Active Substance: DIAZEPAM
  4. KEPPRA [Concomitant]
     Active Substance: LEVETIRACETAM

REACTIONS (4)
  - Head injury [None]
  - Pyrexia [None]
  - Infection [None]
  - Viral infection [None]

NARRATIVE: CASE EVENT DATE: 20230605
